FAERS Safety Report 14337697 (Version 7)
Quarter: 2018Q2

REPORT INFORMATION
  Report Type: Spontaneous
  Country: CA (occurrence: CA)
  Receive Date: 20171229
  Receipt Date: 20180518
  Transmission Date: 20180711
  Serious: Yes (Death, Life-Threatening, Hospitalization, Disabling, Other)
  Sender: FDA-Public Use
  Company Number: CA-PFIZER INC-2017553277

PATIENT
  Age: 61 Year
  Sex: Female
  Weight: 67 kg

DRUGS (28)
  1. FUROSEMIDE. [Suspect]
     Active Substance: FUROSEMIDE
     Dosage: 40 MG, QD
     Route: 048
     Dates: start: 2017, end: 2017
  2. DIGOXIN. [Suspect]
     Active Substance: DIGOXIN
     Dosage: 10 MG, Q1HR
     Route: 042
     Dates: start: 2017
  3. METOCLOPRAMIDE. [Concomitant]
     Active Substance: METOCLOPRAMIDE
     Dosage: 10 MG, Q6HR
     Route: 048
     Dates: start: 20161215
  4. HYDROMORPHONE HYDROCHLORIDE. [Suspect]
     Active Substance: HYDROMORPHONE HYDROCHLORIDE
     Dosage: UNK
     Route: 042
     Dates: start: 2017, end: 2017
  5. AZITHROMYCIN ANHYDROUS. [Suspect]
     Active Substance: AZITHROMYCIN ANHYDROUS
     Dosage: 500 MG, QD
     Route: 042
     Dates: start: 2017, end: 2017
  6. ENOXAPARIN [Suspect]
     Active Substance: ENOXAPARIN
     Dosage: 40 MG, QD
     Route: 058
     Dates: start: 2017, end: 2017
  7. HYDRALAZINE [Suspect]
     Active Substance: HYDRALAZINE HYDROCHLORIDE
     Dosage: 10 MG, EVERY FOUR HOURS
     Route: 042
     Dates: start: 2017
  8. GABAPENTIN. [Concomitant]
     Active Substance: GABAPENTIN
     Dosage: 100 MG, TID
     Route: 048
  9. DEXAMETHASONE. [Concomitant]
     Active Substance: DEXAMETHASONE
     Indication: SUPPORTIVE CARE
     Dosage: 20 MG, QD
     Route: 048
  10. TRASTUZUMAB. [Suspect]
     Active Substance: TRASTUZUMAB
     Indication: BREAST CANCER
     Dosage: UNK
  11. DILTIAZEM CD [Suspect]
     Active Substance: DILTIAZEM
     Dosage: 180 MG, UNK
     Route: 048
     Dates: start: 2017, end: 2017
  12. METOPROLOL. [Suspect]
     Active Substance: METOPROLOL
     Dosage: 2.5 MG, 4X/DAY (EVERY 6 HOURS)
     Route: 042
     Dates: start: 2017
  13. FILGRASTIM [Concomitant]
     Active Substance: FILGRASTIM
     Indication: SUPPORTIVE CARE
     Dosage: 300 UG, QD
     Route: 058
  14. APREPITANT. [Concomitant]
     Active Substance: APREPITANT
     Indication: SUPPORTIVE CARE
     Dosage: 125 MG, UNK
     Route: 048
  15. PANTOPRAZOLE [Suspect]
     Active Substance: PANTOPRAZOLE
     Dosage: 8 MG, ONCE EVERY HOUR
     Route: 042
     Dates: start: 2017
  16. METHYLPREDNISOLONE. [Suspect]
     Active Substance: METHYLPREDNISOLONE
     Dosage: 125 MG, 4X/DAY (EVERY 6 HOURS)
     Route: 042
     Dates: start: 2017, end: 2017
  17. PACLITAXEL. [Suspect]
     Active Substance: PACLITAXEL
     Indication: BREAST CANCER
     Dosage: 297 MG, Q2WEEKS (ONCE EVERY 14 DAYS)
     Route: 042
     Dates: start: 2017, end: 2017
  18. PROCYTOX [Suspect]
     Active Substance: CYCLOPHOSPHAMIDE
     Dosage: 1060 MG, Q2WEEKS (ONCE EVERY 14 DAYS)
     Route: 042
  19. PROCYTOX [Suspect]
     Active Substance: CYCLOPHOSPHAMIDE
     Dosage: 1060 MG, Q2WEEKS (ONCE EVERY 14 DAYS)
     Route: 042
     Dates: start: 2017, end: 2017
  20. ONDANSETRON [Concomitant]
     Active Substance: ONDANSETRON
     Indication: SUPPORTIVE CARE
     Dosage: 8 MG, BID
     Route: 048
  21. DIGOXIN. [Suspect]
     Active Substance: DIGOXIN
     Dosage: 0.25 MG ONE EVERY FOUR HOURS
     Route: 042
     Dates: start: 2017, end: 2017
  22. AMIODARONE HCL [Suspect]
     Active Substance: AMIODARONE HYDROCHLORIDE
     Dosage: UNK
     Dates: start: 2017, end: 2017
  23. MORPHINE SULFATE. [Suspect]
     Active Substance: MORPHINE SULFATE
     Dosage: UNK (ONCE EVERY TEN MINUTES)
     Route: 042
     Dates: start: 2017
  24. CEFTRIAXONE SODIUM. [Suspect]
     Active Substance: CEFTRIAXONE SODIUM
     Dosage: 1 G, QD
     Route: 042
     Dates: start: 2017, end: 2017
  25. DIMENHYDRINATE. [Suspect]
     Active Substance: DIMENHYDRINATE
     Dosage: 50 MG, EVERY FOUR HOURS
     Route: 042
     Dates: start: 2017, end: 2017
  26. METOPROLOL. [Suspect]
     Active Substance: METOPROLOL
     Dosage: 5 MG, 4X/DAY (EVERY 6 HOURS)
     Route: 042
     Dates: start: 2017
  27. DOXORUBICIN HCL [Suspect]
     Active Substance: DOXORUBICIN HYDROCHLORIDE
     Indication: BREAST CANCER
     Dosage: 106 MG, Q2WEEKS (ONCE EVERY 14 DAYS)
     Route: 042
     Dates: start: 2017, end: 2017
  28. PROCYTOX [Suspect]
     Active Substance: CYCLOPHOSPHAMIDE
     Indication: BREAST CANCER
     Dosage: 1060 MG, Q2WEEKS (ONCE EVERY 14 DAYS)
     Route: 042

REACTIONS (3)
  - Atrial fibrillation [Fatal]
  - Hypoxia [Fatal]
  - Alveolitis [Fatal]

NARRATIVE: CASE EVENT DATE: 2017
